FAERS Safety Report 8156296 (Version 9)
Quarter: 2012Q4

REPORT INFORMATION
  Report Type: Spontaneous
  Country: JP (occurrence: None)
  Receive Date: 20110914
  Receipt Date: 20120529
  Transmission Date: 20130627
  Serious: Yes (Death, Disabling)
  Sender: FDA-Public Use
  Company Number: JP-2011-11401

PATIENT
  Age: 77 Year
  Sex: Male
  Weight: 56 kg

DRUGS (10)
  1. SAMSCA [Suspect]
     Indication: DIURETIC THERAPY
     Dosage: 15 MG MILLIGRAM(S), QD, ORAL
     Route: 048
     Dates: start: 20110810, end: 20110816
  2. PLAVIX [Suspect]
     Indication: THROMBOSIS PROPHYLAXIS
     Dosage: 75 MILLIGRAM(S), QD, ORAL
     Route: 048
     Dates: start: 20110809
  3. DORIPENEM [Suspect]
     Indication: PNEUMONIA
     Dosage: 0.25 G GRAM(S), TID, INTRAVENOUS
     Route: 042
     Dates: start: 20110810, end: 20110827
  4. SOLU-MEDROL [Suspect]
     Indication: INTERSTITIAL LUNG DISEASE
     Dosage: 500 MG MILLIGRAM(S), QD, INTRAVENOUS
     Route: 042
     Dates: start: 20110822, end: 20110824
  5. PREDNISOLONE [Suspect]
     Indication: INTERSTITIAL LUNG DISEASE
     Dosage: 60 MG MILLIGRAM(S), QD
     Dates: start: 20110825
  6. BAYASPIRIN (ACETYSALICYLIC ACID) [Concomitant]
  7. CONCENTRATED RED CELLS (CONCENTRATED HUMAN RED BLOOD CELLS) [Concomitant]
  8. LASIX [Concomitant]
  9. TRICHLORMETHIAZIDE [Concomitant]
  10. MIDAZOLAM [Concomitant]

REACTIONS (6)
  - Pulmonary oedema [None]
  - Interstitial lung disease [None]
  - Blood urea increased [None]
  - Meningitis fungal [None]
  - Cardiogenic shock [None]
  - Blood urea increased [None]
